FAERS Safety Report 18263534 (Version 1)
Quarter: 2020Q3

REPORT INFORMATION
  Report Type: Spontaneous
  Country: FR (occurrence: FR)
  Receive Date: 20200914
  Receipt Date: 20200914
  Transmission Date: 20201103
  Serious: Yes (Other)
  Sender: FDA-Public Use
  Company Number: FR-009507513-2009FRA003848

PATIENT
  Age: 57 Year
  Sex: Female

DRUGS (2)
  1. CYCLOSPORINE. [Concomitant]
     Active Substance: CYCLOSPORINE
     Dosage: UNK
  2. PREVYMIS [Suspect]
     Active Substance: LETERMOVIR
     Dosage: UNK
     Route: 048
     Dates: start: 202008

REACTIONS (1)
  - Graft versus host disease [Unknown]
